FAERS Safety Report 9269358 (Version 1)
Quarter: 2013Q2

REPORT INFORMATION
  Report Type: Spontaneous
  Country: US (occurrence: US)
  Receive Date: 20130503
  Receipt Date: 20130503
  Transmission Date: 20140414
  Serious: Yes (Other)
  Sender: FDA-Public Use
  Company Number: PHEH2013US009656

PATIENT
  Sex: Male

DRUGS (8)
  1. EXELON PATCH [Suspect]
     Dosage: UNK UKN, UNK
  2. BETA BLOCKING AGENTS [Suspect]
  3. LISINOPRIL [Concomitant]
     Dosage: UNK UKN, UNK
  4. POTASSIUM [Concomitant]
     Dosage: UNK UKN, UNK
  5. FUROSEMIDE [Concomitant]
     Dosage: UNK UKN, UNK
  6. GLIPIZIDE [Concomitant]
     Dosage: UNK UKN, UNK
  7. PROBENECID [Concomitant]
     Dosage: UNK UKN, UNK
  8. CEFOXITINA [Concomitant]
     Dosage: UNK UKN, UNK

REACTIONS (6)
  - Pulmonary fibrosis [Unknown]
  - Heart rate decreased [Unknown]
  - Abdominal discomfort [Unknown]
  - Fear [Unknown]
  - Hypertension [Unknown]
  - Anxiety [Unknown]
